FAERS Safety Report 9935171 (Version 2)
Quarter: 2014Q1

REPORT INFORMATION
  Report Type: Spontaneous
  Country: US (occurrence: US)
  Receive Date: 20140228
  Receipt Date: 20140324
  Transmission Date: 20141002
  Serious: No
  Sender: FDA-Public Use
  Company Number: US-JNJFOC-20140209514

PATIENT
  Sex: Male
  Weight: 74.84 kg

DRUGS (11)
  1. DURAGESIC [Suspect]
     Indication: PAIN
     Route: 062
  2. DURAGESIC [Suspect]
     Indication: PAIN
     Route: 062
  3. DURAGESIC [Suspect]
     Indication: PAIN
     Route: 062
     Dates: start: 2002, end: 2002
  4. DURAGESIC [Suspect]
     Indication: PAIN
     Route: 062
     Dates: start: 2002, end: 2002
  5. DURAGESIC [Suspect]
     Indication: PRODUCT USED FOR UNKNOWN INDICATION
     Route: 062
  6. PAIN MEDICATION NOS (OTC) [Suspect]
     Indication: PAIN
     Route: 065
  7. LISINOPRIL [Concomitant]
     Indication: HYPERTENSION
     Route: 048
  8. HYDROCODONE [Concomitant]
     Indication: BREAKTHROUGH PAIN
     Dosage: DOSE:10/325MG
     Route: 048
  9. CELEBREX [Concomitant]
     Indication: OSTEOARTHRITIS
     Route: 048
  10. GABAPENTIN [Concomitant]
     Indication: PAIN
     Route: 065
  11. LYRICA [Concomitant]
     Indication: PAIN
     Route: 048
     Dates: start: 2014

REACTIONS (6)
  - Product quality issue [Unknown]
  - Drug dose omission [Recovered/Resolved]
  - Wrong technique in drug usage process [Unknown]
  - Drug ineffective [Unknown]
  - Hyperaesthesia [Unknown]
  - Therapeutic response decreased [Unknown]
